FAERS Safety Report 10015806 (Version 2)
Quarter: 2014Q2

REPORT INFORMATION
  Report Type: Spontaneous
  Country: US (occurrence: US)
  Receive Date: 20140317
  Receipt Date: 20140620
  Transmission Date: 20141212
  Serious: Yes (Other)
  Sender: FDA-Public Use
  Company Number: US-GLAXOSMITHKLINE-A1064344A

PATIENT
  Age: 51 Year
  Sex: Female

DRUGS (10)
  1. VOTRIENT [Suspect]
     Indication: RENAL CANCER
     Dosage: 400MG PER DAY
     Route: 065
     Dates: start: 20130921
  2. RADIATION THERAPY [Suspect]
  3. METOPROLOL [Concomitant]
  4. PEPCID [Concomitant]
  5. SPIRONOLACTONE [Concomitant]
  6. DIOVAN [Concomitant]
  7. IMODIUM [Concomitant]
  8. LEVOTHYROXINE [Concomitant]
  9. SENNA [Concomitant]
  10. ZYRTEC [Concomitant]

REACTIONS (8)
  - Cardiac failure congestive [Not Recovered/Not Resolved]
  - Constipation [Not Recovered/Not Resolved]
  - Arthralgia [Not Recovered/Not Resolved]
  - Nausea [Not Recovered/Not Resolved]
  - Gastrooesophageal reflux disease [Not Recovered/Not Resolved]
  - Hypothyroidism [Not Recovered/Not Resolved]
  - Vomiting [Unknown]
  - Drug dose omission [Unknown]
